FAERS Safety Report 24432290 (Version 1)
Quarter: 2024Q4

REPORT INFORMATION
  Report Type: Spontaneous
  Country: IT (occurrence: IT)
  Receive Date: 20241014
  Receipt Date: 20241014
  Transmission Date: 20250115
  Serious: Yes (Other)
  Sender: JOHNSON AND JOHNSON
  Company Number: IT-JNJFOC-20241026965

PATIENT
  Age: 60 Year
  Sex: Male

DRUGS (1)
  1. REMICADE [Suspect]
     Active Substance: INFLIXIMAB
     Indication: Hidradenitis
     Route: 041

REACTIONS (2)
  - Pyoderma gangrenosum [Not Recovered/Not Resolved]
  - Off label use [Unknown]
